FAERS Safety Report 7716290-3 (Version None)
Quarter: 2011Q3

REPORT INFORMATION
  Report Type: 
  Country: None (occurrence: None)
  Receive Date: 20110815
  Receipt Date: 20110608
  Transmission Date: 20111222
  Serious: Yes (Hospitalization)
  Sender: FDA-Public Use
  Company Number: US-GDP-11410848

PATIENT
  Sex: Female

DRUGS (5)
  1. ZYRTEC [Concomitant]
  2. COSMETICS [Concomitant]
  3. SUN BATH PROTECTIVE TANNING LOTION [Concomitant]
  4. DIFFERIN [Suspect]
     Indication: ACNE
     Dosage: (1 DF QD TOPICAL) (1 DF QOD TOPICAL)
     Route: 061
     Dates: start: 20110320, end: 20110501
  5. DIFFERIN [Suspect]
     Indication: ACNE
     Dosage: (1 DF QD TOPICAL) (1 DF QOD TOPICAL)
     Route: 061
     Dates: start: 20110501

REACTIONS (3)
  - RASH [None]
  - SKIN IRRITATION [None]
  - PRURITUS [None]
